FAERS Safety Report 4750826-X (Version None)
Quarter: 2005Q3

REPORT INFORMATION
  Report Type: 
  Country: None (occurrence: None)
  Receive Date: 20050822
  Receipt Date: 20050809
  Transmission Date: 20060218
  Serious: Yes (Other)
  Sender: FDA-Public Use
  Company Number: 2005-BP-13654RO

PATIENT
  Age: 65 Year
  Sex: Female

DRUGS (5)
  1. PREDNISONE [Suspect]
     Indication: RHEUMATOID ARTHRITIS
     Dosage: 10 MG DAILY (10 MG) PO
     Route: 048
  2. METHOTREXATE [Suspect]
     Indication: RHEUMATOID ARTHRITIS
     Dosage: 10 MG PER WEEK (NR) PO
     Route: 048
  3. ETHAMBUTOL (ETHAMBUTOL) [Suspect]
     Indication: TUBERCULOSIS
     Dosage: 400 MG DAILY (400 MG DAILY) PO
     Route: 048
     Dates: start: 20040801, end: 20050501
  4. RIFAMPICIN [Suspect]
     Indication: TUBERCULOSIS
     Dosage: 600 MG DAILY (NR) PO
     Route: 048
     Dates: start: 20040801, end: 20050501
  5. PYRAZINAMIDE [Suspect]
     Indication: TUBERCULOSIS
     Dosage: 1500 MG DAILY (NR) PO
     Route: 048
     Dates: start: 20040801, end: 20050501

REACTIONS (4)
  - CATARACT [None]
  - DRUG TOXICITY [None]
  - RHEUMATOID ARTHRITIS [None]
  - TUBERCULOSIS [None]
